FAERS Safety Report 17155394 (Version 1)
Quarter: 2019Q4

REPORT INFORMATION
  Report Type: Spontaneous
  Country: US (occurrence: US)
  Receive Date: 20191215
  Receipt Date: 20191215
  Transmission Date: 20200122
  Serious: No
  Sender: FDA-Public Use
  Company Number: NVSC2019US022676

PATIENT
  Age: 10 Year
  Sex: Male

DRUGS (5)
  1. METHYLPREDNISOLONE. [Suspect]
     Active Substance: METHYLPREDNISOLONE
     Indication: BRONCHOSPASM
     Dosage: UNK
     Route: 065
  2. MAGNESIUM [Suspect]
     Active Substance: MAGNESIUM
     Indication: BRONCHOSPASM
     Dosage: UNK
     Route: 065
  3. TERBUTALINE [Suspect]
     Active Substance: TERBUTALINE
     Indication: BRONCHOSPASM
     Dosage: 4 MCG/KG/MIN
     Route: 065
  4. KETAMINE [Suspect]
     Active Substance: KETAMINE
     Indication: BRONCHOSPASM
     Dosage: UNK
     Route: 065
  5. THEOPHYLLINE [Suspect]
     Active Substance: THEOPHYLLINE ANHYDROUS
     Indication: BRONCHOSPASM
     Dosage: 1.6 MG/KG, QH
     Route: 065

REACTIONS (1)
  - Drug ineffective [Unknown]
